FAERS Safety Report 6829470-6 (Version None)
Quarter: 2010Q3

REPORT INFORMATION
  Report Type: 
  Country: None (occurrence: None)
  Receive Date: 20100709
  Receipt Date: 20070427
  Transmission Date: 20110219
  Serious: No
  Sender: FDA-Public Use
  Company Number: US-PFIZER INC-2007020032

PATIENT
  Sex: Male
  Weight: 106.59 kg

DRUGS (8)
  1. CHANTIX [Suspect]
     Indication: SMOKING CESSATION THERAPY
     Dates: start: 20070301, end: 20070301
  2. LEXAPRO [Interacting]
     Indication: DEPRESSION
  3. METFORMIN HCL [Concomitant]
  4. CRESTOR [Concomitant]
  5. ACETYLSALICYLIC ACID [Concomitant]
     Indication: PAIN MANAGEMENT
  6. SAW PALMETTO [Concomitant]
     Indication: PROPHYLAXIS
  7. OMEGA-3 TRIGLYCERIDES [Concomitant]
  8. ADVIL LIQUI-GELS [Concomitant]

REACTIONS (3)
  - ABNORMAL DREAMS [None]
  - DRUG INTERACTION [None]
  - SLEEP DISORDER [None]
